FAERS Safety Report 15394347 (Version 2)
Quarter: 2018Q4

REPORT INFORMATION
  Report Type: Report from Study
  Country: DE (occurrence: DE)
  Receive Date: 20180918
  Receipt Date: 20181002
  Transmission Date: 20190204
  Serious: Yes (Hospitalization)
  Sender: FDA-Public Use
  Company Number: DE-ROCHE-2185207

PATIENT
  Age: 79 Year
  Sex: Female
  Weight: 57 kg

DRUGS (10)
  1. ASPIRIN. [Concomitant]
     Active Substance: ASPIRIN
     Route: 048
     Dates: start: 201003
  2. NOVORAPID [Concomitant]
     Active Substance: INSULIN ASPART
     Route: 058
     Dates: start: 1997
  3. PANTOPRAZOL [Concomitant]
     Active Substance: PANTOPRAZOLE SODIUM
     Route: 048
     Dates: start: 201003
  4. OBINUTUZUMAB. [Suspect]
     Active Substance: OBINUTUZUMAB
     Indication: CHRONIC LYMPHOCYTIC LEUKAEMIA
     Dosage: CYCLE 1: 100 MG, D1 900 MG  D1(2); 1000 MG, DAY 8+15, IN 28 DAY CYCLE?DATE OF MOST RECENT DOSE 1000
     Route: 042
     Dates: start: 20170516
  5. URSOFALK [Concomitant]
     Active Substance: URSODIOL
     Route: 048
     Dates: start: 2011
  6. L-THYROXIN [Concomitant]
     Active Substance: LEVOTHYROXINE SODIUM
     Route: 048
     Dates: start: 19701202
  7. SORTIS [Concomitant]
     Active Substance: ATORVASTATIN
     Route: 048
     Dates: start: 2011
  8. LANTUS [Concomitant]
     Active Substance: INSULIN GLARGINE
     Dosage: 100 IE?DOSE: 15
     Route: 058
     Dates: start: 1997
  9. BELOC ZOK MITE [Concomitant]
     Active Substance: METOPROLOL SUCCINATE
     Dosage: DOSE: 1/2 TABLET
     Route: 048
     Dates: start: 201003
  10. VENETOCLAX. [Suspect]
     Active Substance: VENETOCLAX
     Indication: CHRONIC LYMPHOCYTIC LEUKAEMIA
     Dosage: DAY 22-28 IN 28 DAY CYCLE ?DATE OF MOST RECENT DOSE 400 MG ON 16/APR/2018
     Route: 048
     Dates: start: 20170606

REACTIONS (1)
  - Carotid artery stenosis [Recovered/Resolved]

NARRATIVE: CASE EVENT DATE: 20180913
